FAERS Safety Report 21475922 (Version 3)
Quarter: 2022Q4

REPORT INFORMATION
  Report Type: Spontaneous
  Country: CA (occurrence: CA)
  Receive Date: 20221019
  Receipt Date: 20221228
  Transmission Date: 20230112
  Serious: No
  Sender: FDA-Public Use
  Company Number: CA-CELLTRION INC.-2022CA015253

PATIENT

DRUGS (5)
  1. INFLECTRA [Suspect]
     Active Substance: INFLIXIMAB-DYYB
     Indication: Crohn^s disease
     Dosage: 5 MG/KG, EVERY 8 WEEKS, WEEK 0,2,6 THEN Q 8 WEEKS
     Route: 042
     Dates: start: 20220819
  2. INFLECTRA [Suspect]
     Active Substance: INFLIXIMAB-DYYB
     Dosage: 5 MG/KG, EVERY 8 WEEKS, WEEK 0,2,6 THEN Q 8 WEEKS
     Route: 042
     Dates: start: 20220902
  3. INFLECTRA [Suspect]
     Active Substance: INFLIXIMAB-DYYB
     Dosage: 590 MG (SUPPOSED TO RECEIVE 5 MG/KG, EVERY 8 WEEKS, WEEK 0,2,6 THEN Q 8 WEEKS)
     Route: 042
     Dates: start: 20221007
  4. PREDNISONE [Concomitant]
     Active Substance: PREDNISONE
     Dosage: UNK
  5. PREDNISONE [Concomitant]
     Active Substance: PREDNISONE
     Dosage: 1 DROP, DOSAGE NOT AVAILABLE
     Route: 065

REACTIONS (3)
  - Incorrect dose administered [Unknown]
  - Infusion site extravasation [Unknown]
  - Concussion [Unknown]

NARRATIVE: CASE EVENT DATE: 20220824
